FAERS Safety Report 12651144 (Version 1)
Quarter: 2016Q3

REPORT INFORMATION
  Report Type: Spontaneous
  Country: US (occurrence: None)
  Receive Date: 20160812
  Receipt Date: 20160812
  Transmission Date: 20161109
  Serious: No
  Sender: FDA-Public Use
  Company Number: None

PATIENT
  Age: 63 Year
  Sex: Female

DRUGS (9)
  1. PRILOSEC [Concomitant]
     Active Substance: OMEPRAZOLE MAGNESIUM
  2. ZOLPIDEM [Concomitant]
     Active Substance: ZOLPIDEM\ZOLPIDEM TARTRATE
  3. VITAMIN D3 [Concomitant]
     Active Substance: CHOLECALCIFEROL
  4. LEVOTHYROXIN [Concomitant]
     Active Substance: LEVOTHYROXINE
  5. OXYCODONE [Concomitant]
     Active Substance: OXYCODONE
  6. FASLODEX [Concomitant]
     Active Substance: FULVESTRANT
  7. ONDANSETRON [Concomitant]
     Active Substance: ONDANSETRON
  8. EXEMESTANE. [Concomitant]
     Active Substance: EXEMESTANE
  9. IBRANCE [Suspect]
     Active Substance: PALBOCICLIB
     Indication: BREAST CANCER
     Dosage: 100MG DAILY FOR 21 DAYS PO
     Route: 048
     Dates: start: 20150501

REACTIONS (3)
  - Neuropathy peripheral [None]
  - Memory impairment [None]
  - Drug dose omission [None]

NARRATIVE: CASE EVENT DATE: 201607
